FAERS Safety Report 6034486-6 (Version None)
Quarter: 2009Q1

REPORT INFORMATION
  Report Type: 
  Country: None (occurrence: None)
  Receive Date: 20090109
  Receipt Date: 20090109
  Transmission Date: 20090719
  Serious: No
  Sender: FDA-Public Use
  Company Number: None

PATIENT
  Sex: Male

DRUGS (7)
  1. ZOMETA [Suspect]
     Indication: PROSTATE CANCER
     Dosage: 4 MG MONTHLY IV
     Route: 042
     Dates: start: 20070201, end: 20070501
  2. TAXOTERE [Concomitant]
  3. LUPRON [Concomitant]
  4. PREDNISONE [Concomitant]
  5. EFFEXOR [Concomitant]
  6. ASPIRIN [Concomitant]
  7. VITS B + D [Concomitant]

REACTIONS (1)
  - DENTAL ALVEOLAR ANOMALY [None]
